FAERS Safety Report 7109039-9 (Version None)
Quarter: 2010Q4

REPORT INFORMATION
  Report Type: 
  Country: None (occurrence: None)
  Receive Date: 20101117
  Receipt Date: 20101110
  Transmission Date: 20110411
  Serious: Yes (Congenital Anomaly)
  Sender: FDA-Public Use
  Company Number: CI-GILEAD-2010-0032669

PATIENT
  Sex: Male

DRUGS (4)
  1. TRUVADA [Suspect]
     Indication: HIV INFECTION
     Dates: start: 20091207, end: 20091214
  2. ALUVIA [Concomitant]
     Indication: HIV INFECTION
     Dates: start: 20091207
  3. DUOVIR [Concomitant]
     Indication: HIV INFECTION
     Dates: start: 20091214
  4. BACTRIM [Concomitant]
     Route: 048
     Dates: start: 20091119, end: 20100917

REACTIONS (4)
  - ATRIAL SEPTAL DEFECT [None]
  - PATENT DUCTUS ARTERIOSUS [None]
  - PULMONARY VALVE STENOSIS [None]
  - VENTRICULAR SEPTAL DEFECT [None]
